FAERS Safety Report 23914709 (Version 2)
Quarter: 2024Q2

REPORT INFORMATION
  Report Type: Spontaneous
  Country: US (occurrence: US)
  Receive Date: 20240529
  Receipt Date: 20240612
  Transmission Date: 20240716
  Serious: Yes (Life-Threatening, Hospitalization)
  Sender: FDA-Public Use
  Company Number: US-TEVA-VS-3201975

PATIENT
  Age: 27 Year
  Sex: Male

DRUGS (1)
  1. LOPERAMIDE [Suspect]
     Active Substance: LOPERAMIDE
     Indication: Product used for unknown indication
     Route: 048

REACTIONS (4)
  - Overdose [Unknown]
  - Toxicity to various agents [Recovering/Resolving]
  - Multiple organ dysfunction syndrome [Recovering/Resolving]
  - Lactic acidosis [Unknown]
